FAERS Safety Report 12933667 (Version 1)
Quarter: 2016Q4

REPORT INFORMATION
  Report Type: Spontaneous
  Country: BE (occurrence: BE)
  Receive Date: 20161111
  Receipt Date: 20161111
  Transmission Date: 20170207
  Serious: Yes (Death, Life-Threatening)
  Sender: FDA-Public Use
  Company Number: BE-FRESENIUS KABI-FK201608675

PATIENT
  Age: 74 Year
  Sex: Female

DRUGS (2)
  1. AZATHIOPRINE. [Suspect]
     Active Substance: AZATHIOPRINE
     Indication: LUPUS MYOCARDITIS
     Route: 065
  2. METHYLPREDNISOLONE (MANUFACTURER UNKNOWN) [Suspect]
     Active Substance: METHYLPREDNISOLONE
     Indication: LUPUS MYOCARDITIS
     Route: 065

REACTIONS (4)
  - Mucormycosis [Not Recovered/Not Resolved]
  - Septic shock [Unknown]
  - Multiple organ dysfunction syndrome [Fatal]
  - Nocardiosis [Not Recovered/Not Resolved]
